FAERS Safety Report 11535149 (Version 1)
Quarter: 2015Q3

REPORT INFORMATION
  Report Type: Spontaneous
  Country: US (occurrence: None)
  Receive Date: 20150921
  Receipt Date: 20150921
  Transmission Date: 20151125
  Serious: Yes (Disabling)
  Sender: FDA-Public Use
  Company Number: None

PATIENT
  Age: 60 Year
  Sex: Female
  Weight: 68.04 kg

DRUGS (9)
  1. FISH OIL [Concomitant]
     Active Substance: FISH OIL
  2. VITAMIN B12 [Concomitant]
     Active Substance: CYANOCOBALAMIN
  3. ZOLOFT [Suspect]
     Active Substance: SERTRALINE HYDROCHLORIDE
  4. LEVOTHYROXINE. [Concomitant]
     Active Substance: LEVOTHYROXINE
  5. 5-HTP 100MG NATURES BOUNTY [Suspect]
     Active Substance: OXITRIPTAN
     Indication: AFFECTIVE DISORDER
     Dosage: 1
     Route: 048
     Dates: start: 20150919, end: 20150920
  6. DIETARY SUPPLEMENT [Suspect]
     Active Substance: DIETARY SUPPLEMENT
  7. TRAZODONE [Concomitant]
     Active Substance: TRAZODONE HYDROCHLORIDE
  8. VITAMIN D [Concomitant]
     Active Substance: CHOLECALCIFEROL
  9. MULTIVITAMIN [Concomitant]
     Active Substance: VITAMINS

REACTIONS (6)
  - Diarrhoea [None]
  - Pyrexia [None]
  - Confusional state [None]
  - Headache [None]
  - Vomiting [None]
  - Serotonin syndrome [None]

NARRATIVE: CASE EVENT DATE: 20150919
